FAERS Safety Report 5576687-7 (Version None)
Quarter: 2007Q4

REPORT INFORMATION
  Report Type: 
  Country: None (occurrence: None)
  Receive Date: 20071130
  Receipt Date: 20070725
  Transmission Date: 20080405
  Serious: No
  Sender: FDA-Public Use
  Company Number: US200708001175

PATIENT
  Sex: Male
  Weight: 3 kg

DRUGS (4)
  1. BYETTA [Suspect]
     Indication: TYPE 2 DIABETES MELLITUS
     Dosage: TRANSPLACENTAL
     Route: 064
     Dates: start: 20050101, end: 20060101
  2. GLYBURIDE [Concomitant]
  3. GLUCOPHAGE [Concomitant]
  4. INSULIN (INSULIN) [Concomitant]

REACTIONS (2)
  - DRUG EXPOSURE DURING PREGNANCY [None]
  - PREMATURE BABY [None]
